FAERS Safety Report 7660038-8 (Version None)
Quarter: 2011Q3

REPORT INFORMATION
  Report Type: 
  Country: None (occurrence: None)
  Receive Date: 20110805
  Receipt Date: 20110805
  Transmission Date: 20111222
  Serious: Yes (Death)
  Sender: FDA-Public Use
  Company Number: CA-ABBOTT-10P-028-0661199-00

PATIENT
  Sex: Male

DRUGS (3)
  1. MAVIK [Suspect]
     Indication: ESSENTIAL HYPERTENSION
     Route: 048
  2. ACTONEL [Concomitant]
     Indication: PRODUCT USED FOR UNKNOWN INDICATION
     Dosage: 35 MG
  3. HYDROCHLORIZIDE [Concomitant]
     Indication: PRODUCT USED FOR UNKNOWN INDICATION
     Route: 048

REACTIONS (2)
  - MULTIPLE MYELOMA [None]
  - METASTATIC NEOPLASM [None]
